FAERS Safety Report 10588486 (Version 2)
Quarter: 2014Q4

REPORT INFORMATION
  Report Type: Spontaneous
  Country: US (occurrence: US)
  Receive Date: 20141117
  Receipt Date: 20141215
  Transmission Date: 20150529
  Serious: Yes (Hospitalization, Other)
  Sender: FDA-Public Use
  Company Number: US-B.I. PHARMACEUTICALS,INC./RIDGEFIELD-2014-BI-54627BP

PATIENT
  Age: 81 Year
  Sex: Male
  Weight: 97.52 kg

DRUGS (6)
  1. PLAVIX [Concomitant]
     Active Substance: CLOPIDOGREL BISULFATE
     Indication: CEREBROVASCULAR ACCIDENT PROPHYLAXIS
     Route: 065
  2. TRADJENTA [Suspect]
     Active Substance: LINAGLIPTIN
     Indication: TYPE 2 DIABETES MELLITUS
     Dosage: 5 MG
     Route: 048
     Dates: start: 20140925, end: 20141030
  3. AMLODIPINE [Concomitant]
     Active Substance: AMLODIPINE BESYLATE
     Indication: HYPERTENSION
     Route: 065
  4. LOVASTATIN. [Concomitant]
     Active Substance: LOVASTATIN
     Indication: HYPERCHOLESTEROLAEMIA
     Route: 065
  5. PEPCID [Concomitant]
     Active Substance: FAMOTIDINE
     Indication: GASTROOESOPHAGEAL REFLUX DISEASE
     Route: 065
  6. LOSARTAN [Concomitant]
     Active Substance: LOSARTAN
     Indication: HYPERTENSION
     Route: 065

REACTIONS (18)
  - Dyspnoea [Unknown]
  - Aphasia [Unknown]
  - Leukocytosis [Unknown]
  - Acute kidney injury [Unknown]
  - Hypersensitivity [Unknown]
  - Cellulitis [Unknown]
  - Necrosis [Unknown]
  - Sepsis [Unknown]
  - Critical illness polyneuropathy [Unknown]
  - Cardiac failure congestive [Unknown]
  - Metabolic encephalopathy [Unknown]
  - Asthenia [Unknown]
  - Acute respiratory failure [Unknown]
  - Acute myocardial infarction [Unknown]
  - Urinary tract infection fungal [Unknown]
  - Atrial fibrillation [Unknown]
  - Skin ulcer [Unknown]
  - Hypotension [Recovered/Resolved]

NARRATIVE: CASE EVENT DATE: 20141012
